FAERS Safety Report 24022205 (Version 3)
Quarter: 2024Q2

REPORT INFORMATION
  Report Type: Spontaneous
  Country: US (occurrence: US)
  Receive Date: 20240627
  Receipt Date: 20240627
  Transmission Date: 20240716
  Serious: No
  Sender: FDA-Public Use
  Company Number: US-ROCHE-3536711

PATIENT
  Age: 91 Year
  Sex: Female

DRUGS (2)
  1. VABYSMO [Suspect]
     Active Substance: FARICIMAB\FARICIMAB-SVOA
     Indication: Neovascular age-related macular degeneration
     Dosage: 24/FEB/2023 OD AND 12/APR/2023 OS
     Route: 065
     Dates: start: 20230224, end: 20231020
  2. VABYSMO [Suspect]
     Active Substance: FARICIMAB\FARICIMAB-SVOA
     Indication: Choroidal neovascularisation

REACTIONS (6)
  - Iritis [Recovered/Resolved]
  - Corneal opacity [Unknown]
  - Keratic precipitates [Recovered/Resolved]
  - Iridocyclitis [Recovered/Resolved]
  - Corneal oedema [Unknown]
  - Intraocular pressure increased [Unknown]

NARRATIVE: CASE EVENT DATE: 20231117
